FAERS Safety Report 11987991 (Version 2)
Quarter: 2016Q1

REPORT INFORMATION
  Report Type: Spontaneous
  Country: DK (occurrence: DK)
  Receive Date: 20160202
  Receipt Date: 20160215
  Transmission Date: 20160526
  Serious: Yes (Other)
  Sender: FDA-Public Use
  Company Number: PHHY2016DK012703

PATIENT
  Sex: Female

DRUGS (2)
  1. ARZERRA [Suspect]
     Active Substance: OFATUMUMAB
     Indication: NEUROMYELITIS OPTICA SPECTRUM DISORDER
     Dosage: EVERY THIRD MONTH
     Route: 042
  2. MABTHERA [Suspect]
     Active Substance: RITUXIMAB
     Indication: NEUROMYELITIS OPTICA SPECTRUM DISORDER
     Dosage: ONCE IN 3 MONTHS
     Route: 042

REACTIONS (3)
  - Rash [Unknown]
  - Bone pain [Not Recovered/Not Resolved]
  - Off label use [Unknown]
